FAERS Safety Report 5115878-6 (Version None)
Quarter: 2006Q3

REPORT INFORMATION
  Report Type: 
  Country: None (occurrence: None)
  Receive Date: 20060927
  Receipt Date: 20060918
  Transmission Date: 20061208
  Serious: Yes (Other)
  Sender: FDA-Public Use
  Company Number: PHEH2006US11869

PATIENT
  Age: 76 Year
  Sex: Female

DRUGS (3)
  1. ZOMETA [Suspect]
     Indication: BONE CANCER METASTATIC
     Dates: start: 20041101, end: 20060705
  2. PAMIDRONATE DISODIUM [Suspect]
     Indication: BONE CANCER METASTATIC
     Dosage: ^90, MONTHLY^
     Dates: start: 20040101, end: 20040901
  3. AROMASIN [Concomitant]
     Indication: BREAST CANCER
     Dosage: 25, UNK
     Dates: start: 20060401

REACTIONS (1)
  - OSTEONECROSIS [None]
